FAERS Safety Report 9210518 (Version 1)
Quarter: 2013Q2

REPORT INFORMATION
  Report Type: Spontaneous
  Country: DE (occurrence: DE)
  Receive Date: 20130404
  Receipt Date: 20130404
  Transmission Date: 20140414
  Serious: Yes (Other)
  Sender: FDA-Public Use
  Company Number: DE-ASTRAZENECA-2013SE20275

PATIENT
  Sex: Male

DRUGS (3)
  1. SYMBICORT TURBOHALER [Suspect]
     Indication: CHRONIC OBSTRUCTIVE PULMONARY DISEASE
     Dosage: 160/4.5UG, 1 PUFF TWICE DAILY
     Route: 055
     Dates: start: 201303
  2. CORTISONE [Concomitant]
  3. NITROLINGUAL [Concomitant]

REACTIONS (3)
  - Chest pain [Recovering/Resolving]
  - Chest discomfort [Recovering/Resolving]
  - Rash [Unknown]
